FAERS Safety Report 4709710-X (Version None)
Quarter: 2005Q3

REPORT INFORMATION
  Report Type: 
  Country: None (occurrence: None)
  Receive Date: 20050707
  Receipt Date: 20050622
  Transmission Date: 20060218
  Serious: Yes (Hospitalization)
  Sender: FDA-Public Use
  Company Number: USA0506101073

PATIENT
  Age: 83 Year
  Sex: Male
  Weight: 91 kg

DRUGS (2)
  1. HUMULIN N [Suspect]
     Indication: DIABETES MELLITUS NON-INSULIN-DEPENDENT
  2. HUMULIN R [Suspect]
     Indication: DIABETES MELLITUS NON-INSULIN-DEPENDENT

REACTIONS (4)
  - BLOOD GLUCOSE INCREASED [None]
  - CONSTIPATION [None]
  - HYPERTENSION [None]
  - PNEUMONIA [None]
